FAERS Safety Report 10387073 (Version 1)
Quarter: 2014Q3

REPORT INFORMATION
  Report Type: Spontaneous
  Country: US (occurrence: US)
  Receive Date: 20140815
  Receipt Date: 20140815
  Transmission Date: 20150326
  Serious: Yes (Hospitalization, Other)
  Sender: FDA-Public Use
  Company Number: US-NOVOPROD-418819

PATIENT
  Age: 58 Year
  Sex: Female

DRUGS (1)
  1. NOVOLOG [Suspect]
     Active Substance: INSULIN ASPART
     Indication: TYPE 1 DIABETES MELLITUS
     Route: 058

REACTIONS (4)
  - Product quality issue [Unknown]
  - Investigation [Unknown]
  - Hypoglycaemia [Recovered/Resolved]
  - Diabetic ketoacidosis [Unknown]

NARRATIVE: CASE EVENT DATE: 2014
